FAERS Safety Report 21747197 (Version 3)
Quarter: 2023Q1

REPORT INFORMATION
  Report Type: Report from Study
  Country: US (occurrence: US)
  Receive Date: 20221219
  Receipt Date: 20230307
  Transmission Date: 20230418
  Serious: Yes (Other)
  Sender: FDA-Public Use
  Company Number: US-ABBVIE-4204566

PATIENT
  Age: 61 Year
  Sex: Male
  Weight: 81 kg

DRUGS (3)
  1. HUMIRA [Suspect]
     Active Substance: ADALIMUMAB
     Indication: Crohn^s disease
     Dosage: DRUG RESTART DATE WAS 25 DEC 2022.
     Route: 058
     Dates: start: 20221225
  2. HUMIRA [Suspect]
     Active Substance: ADALIMUMAB
     Route: 058
     Dates: start: 202110, end: 202211
  3. HUMIRA [Suspect]
     Active Substance: ADALIMUMAB
     Route: 058

REACTIONS (4)
  - Retention cyst [Recovered/Resolved]
  - Osteoarthritis [Unknown]
  - Exostosis [Unknown]
  - Adhesion [Unknown]

NARRATIVE: CASE EVENT DATE: 20170120
